FAERS Safety Report 6557998-5 (Version None)
Quarter: 2010Q1

REPORT INFORMATION
  Report Type: 
  Country: None (occurrence: None)
  Receive Date: 20100129
  Receipt Date: 20100126
  Transmission Date: 20100710
  Serious: Yes (Hospitalization)
  Sender: FDA-Public Use
  Company Number: AU-ROCHE-676757

PATIENT
  Sex: Female
  Weight: 68 kg

DRUGS (9)
  1. TRASTUZUMAB [Suspect]
     Indication: BREAST CANCER
     Dosage: FORM: VIALS, DOSE LEVEL: 6MG/KG, LAST DOSE PRIOR TO SAE: 10 DECEMBER 2009.
     Route: 042
     Dates: start: 20091210
  2. TRASTUZUMAB [Suspect]
     Dosage: DOSE LEVEL: 8 MG/KG.LAST DOSE PRIOR TO SAE: 31 DECEMBER 2009.
     Route: 042
     Dates: start: 20091210
  3. BEVACIZUMAB [Suspect]
     Indication: BREAST CANCER
     Dosage: DOSE AND FREQUENCY TAKEN AS PER PROTOCOL, FORM: VIAL
     Route: 042
  4. CARBOPLATIN [Suspect]
     Indication: BREAST CANCER
     Dosage: FORM: VIALS, DOSE LEVEL: 6 AUC
     Route: 042
     Dates: start: 20091210
  5. CARBOPLATIN [Suspect]
     Dosage: FORM: VIALS, DOSE LEVEL: 6 AUC.LAST DOSE PRIOR TO SAE: 31 DECEMBER 2009.
     Route: 042
     Dates: start: 20091210
  6. DOCETAXEL [Suspect]
     Indication: BREAST CANCER
     Dosage: FORM: VIALS, DOSE LEVEL: 75 MG/M2
     Route: 042
     Dates: start: 20091210
  7. LORAZEPAM [Concomitant]
  8. METOCLOPRAMIDE [Concomitant]
  9. MORPHINE [Concomitant]

REACTIONS (5)
  - DEHYDRATION [None]
  - DIARRHOEA [None]
  - NAUSEA [None]
  - NEUTROPENIA [None]
  - VOMITING [None]
